FAERS Safety Report 7798346-2 (Version None)
Quarter: 2011Q4

REPORT INFORMATION
  Report Type: 
  Country: None (occurrence: None)
  Receive Date: 20111005
  Receipt Date: 20110929
  Transmission Date: 20120403
  Serious: Yes (Other)
  Sender: FDA-Public Use
  Company Number: TW-ROXANE LABORATORIES, INC.-2011-RO-01373RO

PATIENT
  Age: 31 Year
  Sex: Female

DRUGS (2)
  1. MORPHINE [Suspect]
     Indication: PROCEDURAL PAIN
     Dosage: 2 MG
     Route: 008
  2. MORPHINE [Suspect]
     Dosage: 4 MG
     Route: 008

REACTIONS (3)
  - PAIN IN EXTREMITY [None]
  - STAPHYLOCOCCAL INFECTION [None]
  - BACK PAIN [None]
